FAERS Safety Report 18340169 (Version 1)
Quarter: 2020Q4

REPORT INFORMATION
  Report Type: Spontaneous
  Country: US (occurrence: US)
  Receive Date: 20201002
  Receipt Date: 20201002
  Transmission Date: 20210113
  Serious: Yes (Death)
  Sender: FDA-Public Use
  Company Number: US-ASTRAZENECA-2000AP03330

PATIENT
  Age: 43 Year
  Sex: Female
  Weight: 77 kg

DRUGS (15)
  1. SEROQUEL [Suspect]
     Active Substance: QUETIAPINE FUMARATE
     Route: 048
  2. PROCHLORPERAZINE. [Concomitant]
     Active Substance: PROCHLORPERAZINE
  3. RISPERIDONE. [Concomitant]
     Active Substance: RISPERIDONE
  4. HYDROMORPHONE [Suspect]
     Active Substance: HYDROMORPHONE
     Route: 065
  5. VENLAFAXINE [Suspect]
     Active Substance: VENLAFAXINE HYDROCHLORIDE
     Route: 065
  6. CLONAZEPAM. [Concomitant]
     Active Substance: CLONAZEPAM
  7. ZOLPIDEM [Concomitant]
     Active Substance: ZOLPIDEM TARTRATE
     Dosage: 10 MG
  8. GABAPENTIN. [Concomitant]
     Active Substance: GABAPENTIN
  9. BUPIVACAINE. [Suspect]
     Active Substance: BUPIVACAINE
     Route: 065
  10. CYCLOBENZAPRINE. [Concomitant]
     Active Substance: CYCLOBENZAPRINE
  11. VALPROIC ACID. [Concomitant]
     Active Substance: VALPROIC ACID
  12. BUPROPION. [Concomitant]
     Active Substance: BUPROPION
     Dosage: 75MG
     Route: 065
  13. PHENYTOIN. [Concomitant]
     Active Substance: PHENYTOIN
  14. METHADONE [Suspect]
     Active Substance: METHADONE HYDROCHLORIDE
     Route: 065
  15. OLANZAPINE. [Concomitant]
     Active Substance: OLANZAPINE
     Dosage: 10 MG,

REACTIONS (1)
  - Toxicity to various agents [Fatal]
